FAERS Safety Report 12543936 (Version 2)
Quarter: 2016Q3

REPORT INFORMATION
  Report Type: Spontaneous
  Country: US (occurrence: US)
  Receive Date: 20160711
  Receipt Date: 20160929
  Transmission Date: 20161109
  Serious: No
  Sender: FDA-Public Use
  Company Number: US-GLAXOSMITHKLINE-US2016094348

PATIENT
  Age: 32 Year
  Sex: Female

DRUGS (1)
  1. TRANSDERM SCOP [Suspect]
     Active Substance: SCOPOLAMINE
     Indication: IMPAIRED GASTRIC EMPTYING
     Dosage: UNK

REACTIONS (13)
  - Application site pain [Recovered/Resolved]
  - Application site erythema [Recovering/Resolving]
  - Therapeutic response unexpected [Unknown]
  - Balance disorder [Recovering/Resolving]
  - Application site pruritus [Recovered/Resolved]
  - Application site irritation [Recovering/Resolving]
  - Vomiting [Recovered/Resolved]
  - Nausea [Recovered/Resolved]
  - Application site swelling [Recovering/Resolving]
  - Off label use [Unknown]
  - Vertigo [Recovered/Resolved]
  - Drug administration error [Unknown]
  - Product quality issue [Unknown]

NARRATIVE: CASE EVENT DATE: 201605
